FAERS Safety Report 20476043 (Version 1)
Quarter: 2022Q1

REPORT INFORMATION
  Report Type: Spontaneous
  Country: US (occurrence: None)
  Receive Date: 20220215
  Receipt Date: 20220215
  Transmission Date: 20220424
  Serious: Yes (unspecified)
  Sender: FDA-Public Use
  Company Number: None

PATIENT
  Age: 18 Year
  Sex: Male
  Weight: 68.9 kg

DRUGS (2)
  1. INFLECTRA [Suspect]
     Active Substance: INFLIXIMAB-DYYB
     Indication: Colitis ulcerative
     Dosage: OTHER FREQUENCY : EVERY 4 WEEKS;?
     Route: 041
     Dates: start: 20210107, end: 20220215
  2. SODIUM CHLORIDE [Concomitant]
     Active Substance: SODIUM CHLORIDE
     Dates: start: 20220215, end: 20220215

REACTIONS (4)
  - Nausea [None]
  - Vomiting [None]
  - Dyspnoea [None]
  - Skin tightness [None]

NARRATIVE: CASE EVENT DATE: 20220215
